FAERS Safety Report 9573107 (Version 1)
Quarter: 2013Q4

REPORT INFORMATION
  Report Type: Spontaneous
  Country: US (occurrence: US)
  Receive Date: 20131001
  Receipt Date: 20131001
  Transmission Date: 20140711
  Serious: No
  Sender: FDA-Public Use
  Company Number: US-BIOGENIDEC-2013BI069874

PATIENT
  Age: 22 Year
  Sex: Female

DRUGS (1)
  1. TECFIDERA [Suspect]
     Indication: MULTIPLE SCLEROSIS
     Route: 002
     Dates: start: 20130607

REACTIONS (3)
  - Multiple sclerosis relapse [Unknown]
  - Coordination abnormal [Unknown]
  - Musculoskeletal disorder [Unknown]
